FAERS Safety Report 5768088-3 (Version None)
Quarter: 2008Q2

REPORT INFORMATION
  Report Type: 
  Country: None (occurrence: None)
  Receive Date: 20080612
  Receipt Date: 20080102
  Transmission Date: 20081010
  Serious: No
  Sender: FDA-Public Use
  Company Number: US-ASTRAZENECA-2007UW22756

PATIENT
  Age: 75 Year
  Sex: Female
  Weight: 47.6 kg

DRUGS (7)
  1. FASLODEX [Suspect]
     Indication: BREAST CANCER FEMALE
     Route: 030
     Dates: start: 20060801
  2. DIAZIDE [Concomitant]
  3. DIGITALIS TAB [Concomitant]
  4. SYNTHROID [Concomitant]
  5. PROTONIX [Concomitant]
  6. COUMADIN [Concomitant]
  7. ATACAND [Concomitant]
     Route: 048

REACTIONS (10)
  - ABDOMINAL PAIN UPPER [None]
  - ALOPECIA [None]
  - BACK PAIN [None]
  - DIZZINESS [None]
  - FATIGUE [None]
  - HEADACHE [None]
  - INJECTION SITE PAIN [None]
  - PAIN [None]
  - PHARYNGOLARYNGEAL PAIN [None]
  - WEIGHT DECREASED [None]
